FAERS Safety Report 17968709 (Version 1)
Quarter: 2020Q3

REPORT INFORMATION
  Report Type: Spontaneous
  Country: US (occurrence: US)
  Receive Date: 20200701
  Receipt Date: 20200701
  Transmission Date: 20201103
  Serious: Yes (Hospitalization)
  Sender: FDA-Public Use
  Company Number: None

PATIENT
  Age: 37 Year
  Sex: Female

DRUGS (2)
  1. RYDAPT [Suspect]
     Active Substance: MIDOSTAURIN
     Indication: MYELOID LEUKAEMIA
     Route: 048
  2. RYDAPT [Concomitant]
     Active Substance: MIDOSTAURIN
     Dates: start: 20200701

REACTIONS (1)
  - Chest pain [None]

NARRATIVE: CASE EVENT DATE: 20200701
